FAERS Safety Report 24805774 (Version 1)
Quarter: 2025Q1

REPORT INFORMATION
  Report Type: Spontaneous
  Country: PH (occurrence: PH)
  Receive Date: 20250103
  Receipt Date: 20250103
  Transmission Date: 20250408
  Serious: Yes (Other)
  Sender: ALEXION PHARMACEUTICALS
  Company Number: PH-ASTRAZENECA-202412GLO017178PH

PATIENT
  Age: 80 Year

DRUGS (1)
  1. OSIMERTINIB [Suspect]
     Active Substance: OSIMERTINIB
     Indication: Non-small cell lung cancer

REACTIONS (3)
  - Metastases to gallbladder [Unknown]
  - Malignant neoplasm progression [Unknown]
  - Metastases to stomach [Unknown]
